FAERS Safety Report 4398017-9 (Version None)
Quarter: 2004Q3

REPORT INFORMATION
  Report Type: 
  Country: None (occurrence: None)
  Receive Date: 20040713
  Receipt Date: 20040630
  Transmission Date: 20050211
  Serious: Yes (Other)
  Sender: FDA-Public Use
  Company Number: DEU-2004-0000902

PATIENT
  Age: 19 Year
  Sex: Female

DRUGS (7)
  1. MORPHINE SULFATE INJ [Suspect]
     Indication: CANCER PAIN
     Dosage: 48 + 600 + 20000 + 4000 + 2000  MG, DAILY, INTRAVENOUS
     Route: 042
     Dates: start: 19930730, end: 19930731
  2. MORPHINE SULFATE INJ [Suspect]
     Indication: CANCER PAIN
     Dosage: 48 + 600 + 20000 + 4000 + 2000  MG, DAILY, INTRAVENOUS
     Route: 042
     Dates: start: 19930802, end: 19930803
  3. MORPHINE SULFATE INJ [Suspect]
     Indication: CANCER PAIN
     Dosage: 48 + 600 + 20000 + 4000 + 2000  MG, DAILY, INTRAVENOUS
     Route: 042
     Dates: start: 19930803, end: 19930804
  4. MORPHINE SULFATE INJ [Suspect]
     Indication: CANCER PAIN
     Dosage: 48 + 600 + 20000 + 4000 + 2000  MG, DAILY, INTRAVENOUS
     Route: 042
     Dates: start: 19930731, end: 19940801
  5. MORPHINE SULFATE INJ [Suspect]
     Indication: CANCER PAIN
     Dosage: 48 + 600 + 20000 + 4000 + 2000  MG, DAILY, INTRAVENOUS
     Route: 042
     Dates: start: 19930712
  6. MORPHINE SULFATE [Suspect]
     Dosage: 260 MG DAILY ORAL
     Route: 048
     Dates: start: 19920801
  7. MORPHINE SULFATE [Suspect]
     Dosage: 260 MG DAILY ORAL
     Route: 048
     Dates: start: 19930601

REACTIONS (4)
  - DRUG TOXICITY [None]
  - HYPERAESTHESIA [None]
  - MIOSIS [None]
  - MYOCLONUS [None]
